FAERS Safety Report 7106857-8 (Version None)
Quarter: 2010Q4

REPORT INFORMATION
  Report Type: 
  Country: None (occurrence: None)
  Receive Date: 20101116
  Receipt Date: 20101029
  Transmission Date: 20110411
  Serious: No
  Sender: FDA-Public Use
  Company Number: US-ABBOTT-10P-163-0682708-00

PATIENT
  Sex: Male
  Weight: 133.02 kg

DRUGS (9)
  1. SIMCOR [Suspect]
     Indication: LOW DENSITY LIPOPROTEIN DECREASED
     Dosage: 500/40
     Dates: start: 20100901
  2. ZOLOFT [Concomitant]
     Indication: DEPRESSION
  3. CARVEDILOL [Concomitant]
     Indication: HYPERTENSION
  4. FEXOFENADINE HCL [Concomitant]
     Indication: HYPERSENSITIVITY
  5. NAPROXEN [Concomitant]
     Indication: BACK PAIN
  6. LISINOPRIL [Concomitant]
     Indication: HYPERTENSION
     Dosage: 1/2 TABLET
  7. DIAZEPAM [Concomitant]
     Indication: ANXIETY
  8. ASPIRIN [Concomitant]
     Indication: ANTICOAGULANT THERAPY
  9. TRIAZOLONE [Concomitant]
     Indication: INSOMNIA
     Dosage: 25MG-3PILLS AT BEDTIME

REACTIONS (3)
  - COLONIC POLYP [None]
  - FEELING HOT [None]
  - HOT FLUSH [None]
